FAERS Safety Report 8168105-X (Version None)
Quarter: 2012Q1

REPORT INFORMATION
  Report Type: 
  Country: None (occurrence: None)
  Receive Date: 20120227
  Receipt Date: 20120217
  Transmission Date: 20120608
  Serious: Yes (Other)
  Sender: FDA-Public Use
  Company Number: PHHY2012CA011704

PATIENT
  Sex: Male

DRUGS (6)
  1. ALLOPURINOL [Concomitant]
     Dosage: 300 MG, QD
  2. RASILEZ [Suspect]
     Dosage: 150 MG, UNK
     Route: 048
     Dates: start: 20110704
  3. PRILOSEC [Concomitant]
     Dosage: 20 MG, QD
  4. GLICLAZIDE [Concomitant]
     Dosage: 40 MG, BID
  5. RENEDIL [Concomitant]
     Dosage: 10 MG, QD
     Dates: end: 20110704
  6. PERINDOPRIL ERBUMINE [Concomitant]
     Dosage: 8 MG, UNK

REACTIONS (1)
  - GLOMERULAR FILTRATION RATE DECREASED [None]
